FAERS Safety Report 4943501-X (Version None)
Quarter: 2006Q1

REPORT INFORMATION
  Report Type: 
  Country: None (occurrence: None)
  Receive Date: 20060309
  Receipt Date: 20060301
  Transmission Date: 20060701
  Serious: Yes (Hospitalization)
  Sender: FDA-Public Use
  Company Number: CERZ-11154

PATIENT
  Age: 81 Year
  Sex: Female
  Weight: 61 kg

DRUGS (5)
  1. CEREZYME [Suspect]
     Indication: GAUCHER'S DISEASE
     Dosage: 3800 UNITS Q2WKS IV
     Route: 042
     Dates: start: 19980701
  2. ASACOL [Concomitant]
  3. VERELAN [Concomitant]
  4. LORAZEPAM [Concomitant]
  5. COUMADIN [Concomitant]

REACTIONS (6)
  - ARRHYTHMIA [None]
  - DEHYDRATION [None]
  - DIARRHOEA HAEMORRHAGIC [None]
  - GASTRIC INFECTION [None]
  - GOUT [None]
  - LOSS OF CONSCIOUSNESS [None]
